FAERS Safety Report 6955283-0 (Version None)
Quarter: 2010Q3

REPORT INFORMATION
  Report Type: 
  Country: None (occurrence: None)
  Receive Date: 20100830
  Receipt Date: 20100817
  Transmission Date: 20110219
  Serious: Yes (Other)
  Sender: FDA-Public Use
  Company Number: PHHY2010JP51289

PATIENT
  Age: 7 Year
  Sex: Female

DRUGS (2)
  1. CYCLOSPORINE [Suspect]
     Indication: APLASTIC ANAEMIA
  2. ANTILYMPHOCYTE IMMUNOGLOBULIN (RABBIT) [Concomitant]
     Indication: APLASTIC ANAEMIA
     Dosage: UNK

REACTIONS (4)
  - APLASTIC ANAEMIA [None]
  - DRUG INEFFECTIVE [None]
  - GENE MUTATION IDENTIFICATION TEST POSITIVE [None]
  - INFECTION [None]
